FAERS Safety Report 5706925-9 (Version None)
Quarter: 2008Q2

REPORT INFORMATION
  Report Type: 
  Country: None (occurrence: None)
  Receive Date: 20080416
  Receipt Date: 20080408
  Transmission Date: 20081010
  Serious: Yes (Hospitalization)
  Sender: FDA-Public Use
  Company Number: US-ASTRAZENECA-2008UW06979

PATIENT
  Age: 24326 Day
  Sex: Male
  Weight: 101 kg

DRUGS (12)
  1. ATACAND HCT [Suspect]
     Indication: HYPERTENSION
     Dosage: 32/12.5 MG QD
     Route: 048
     Dates: start: 20070413
  2. AMARYL [Concomitant]
  3. MULTI-VITAMIN [Concomitant]
  4. SELENIUM [Concomitant]
  5. IMDUR [Concomitant]
  6. ASPIRIN [Concomitant]
  7. PROVENTIL [Concomitant]
  8. LASIX [Concomitant]
  9. TOPROL-XL [Concomitant]
     Route: 048
  10. FIBERCON [Concomitant]
  11. PLAVIX [Concomitant]
  12. LANTUS [Concomitant]

REACTIONS (1)
  - PNEUMONIA PNEUMOCOCCAL [None]
